FAERS Safety Report 18183666 (Version 1)
Quarter: 2020Q3

REPORT INFORMATION
  Report Type: Spontaneous
  Country: US (occurrence: US)
  Receive Date: 20200822
  Receipt Date: 20200822
  Transmission Date: 20201103
  Serious: No
  Sender: FDA-Public Use
  Company Number: US-ANIPHARMA-2019-US-020436

PATIENT
  Age: 66 Year
  Sex: Female
  Weight: 60.78 kg

DRUGS (2)
  1. EXEMESTANE. [Suspect]
     Active Substance: EXEMESTANE
     Dosage: 25 MG ONCE A DAY BY MOUTH
     Route: 048
     Dates: start: 201808, end: 20190923
  2. ANASTROZOLE. [Suspect]
     Active Substance: ANASTROZOLE
     Indication: BREAST CANCER
     Dosage: UNKNOWN
     Route: 065
     Dates: start: 201612, end: 201807

REACTIONS (3)
  - Lupus-like syndrome [Recovered/Resolved]
  - Rash [Recovered/Resolved]
  - Raynaud^s phenomenon [Recovering/Resolving]
